FAERS Safety Report 5266285-7 (Version None)
Quarter: 2007Q1

REPORT INFORMATION
  Report Type: 
  Country: None (occurrence: None)
  Receive Date: 20070315
  Receipt Date: 20070307
  Transmission Date: 20070707
  Serious: Yes (Hospitalization)
  Sender: FDA-Public Use
  Company Number: US-AMGEN-US208231

PATIENT
  Sex: Male
  Weight: 72.6 kg

DRUGS (7)
  1. NEULASTA [Suspect]
     Indication: CHEMOTHERAPY
     Route: 058
     Dates: start: 20070122, end: 20070122
  2. DACOGEN [Concomitant]
     Indication: MYELODYSPLASTIC SYNDROME
     Route: 065
     Dates: start: 20070115, end: 20070119
  3. ACYCLOVIR [Concomitant]
     Route: 065
  4. ARANESP [Concomitant]
     Route: 065
  5. SYNTHROID [Concomitant]
     Route: 065
  6. PROTONIX [Concomitant]
     Route: 065
  7. VITAMIN B6 [Concomitant]
     Route: 065

REACTIONS (8)
  - BLOOD LACTATE DEHYDROGENASE INCREASED [None]
  - BONE PAIN [None]
  - HEPATIC FAILURE [None]
  - HERPES SIMPLEX SEROLOGY POSITIVE [None]
  - HYPOTENSION [None]
  - PNEUMONIA [None]
  - RENAL FAILURE [None]
  - WHITE BLOOD CELL COUNT INCREASED [None]
